FAERS Safety Report 8547934-4 (Version None)
Quarter: 2012Q3

REPORT INFORMATION
  Report Type: 
  Country: None (occurrence: None)
  Receive Date: 20120728
  Receipt Date: 20101130
  Transmission Date: 20120928
  Serious: Yes (Hospitalization)
  Sender: FDA-Public Use
  Company Number: US-BAYER-201038152NA

PATIENT
  Age: 20 Year
  Sex: Female
  Weight: 113.38 kg

DRUGS (4)
  1. IBUPROFEN [Concomitant]
  2. YAZ [Suspect]
     Indication: CONTRACEPTION
     Dosage: UNK UNK, QD
     Route: 048
     Dates: start: 20070720, end: 20080129
  3. MOTRIN [Concomitant]
  4. ALEVE [Concomitant]

REACTIONS (10)
  - CHOLELITHIASIS [None]
  - POSTOPERATIVE ADHESION [None]
  - ABDOMINAL PAIN UPPER [None]
  - BILIARY COLIC [None]
  - GALLBLADDER DISORDER [None]
  - VOMITING [None]
  - OVARIAN ENLARGEMENT [None]
  - ABDOMINAL PAIN [None]
  - CHOLECYSTITIS ACUTE [None]
  - NAUSEA [None]
